FAERS Safety Report 7153147-3 (Version None)
Quarter: 2010Q4

REPORT INFORMATION
  Report Type: 
  Country: None (occurrence: None)
  Receive Date: 20101213
  Receipt Date: 20101206
  Transmission Date: 20110411
  Serious: Yes (Other)
  Sender: FDA-Public Use
  Company Number: DE-PFIZER INC-2010166040

PATIENT

DRUGS (3)
  1. CHAMPIX [Suspect]
  2. SPIRIVA [Concomitant]
  3. SYMBICORT [Concomitant]

REACTIONS (2)
  - ALLERGIC GRANULOMATOUS ANGIITIS [None]
  - EOSINOPHILIA [None]
